FAERS Safety Report 21178959 (Version 2)
Quarter: 2022Q3

REPORT INFORMATION
  Report Type: Report from Study
  Country: US (occurrence: US)
  Receive Date: 20220805
  Receipt Date: 20220824
  Transmission Date: 20221027
  Serious: Yes (Other)
  Sender: FDA-Public Use
  Company Number: US-NOVARTISTESTPH-NVSC2022US176557

PATIENT
  Sex: Female

DRUGS (1)
  1. MAYZENT [Suspect]
     Active Substance: SIPONIMOD
     Indication: Multiple sclerosis
     Dosage: 0.25 MG, QD (4 TABLETS ONCE A DAY TO EQUAL MAYZENT 1MG)
     Route: 048

REACTIONS (3)
  - Multiple sclerosis relapse [Not Recovered/Not Resolved]
  - Product label confusion [Not Recovered/Not Resolved]
  - Product storage error [Unknown]
